FAERS Safety Report 10419877 (Version 2)
Quarter: 2014Q3

REPORT INFORMATION
  Report Type: Spontaneous
  Country: US (occurrence: None)
  Receive Date: 20140828
  Receipt Date: 20140904
  Transmission Date: 20150326
  Serious: Yes (Other)
  Sender: FDA-Public Use
  Company Number: HA14-311-AE

PATIENT
  Age: 40 Year
  Sex: Female
  Weight: 117.94 kg

DRUGS (1)
  1. SMZ / TMP [Suspect]
     Active Substance: SULFAMETHOXAZOLE\TRIMETHOPRIM
     Indication: URINARY TRACT INFECTION
     Route: 048
     Dates: start: 20140725, end: 20140725

REACTIONS (4)
  - Urticaria [None]
  - Dyspnoea [None]
  - Oropharyngeal pain [None]
  - Pruritus [None]

NARRATIVE: CASE EVENT DATE: 20140725
